FAERS Safety Report 16143907 (Version 1)
Quarter: 2019Q2

REPORT INFORMATION
  Report Type: Spontaneous
  Country: CA (occurrence: CA)
  Receive Date: 20190401
  Receipt Date: 20190401
  Transmission Date: 20190711
  Serious: Yes (Other)
  Sender: FDA-Public Use
  Company Number: CA-009507513-1903CAN012718

PATIENT
  Age: 59 Year
  Sex: Female

DRUGS (3)
  1. ZENHALE [Suspect]
     Active Substance: FORMOTEROL FUMARATE\MOMETASONE FUROATE
     Indication: PRODUCT USED FOR UNKNOWN INDICATION
     Dosage: UNK
     Route: 065
  2. SPIRIVA [Suspect]
     Active Substance: TIOTROPIUM BROMIDE MONOHYDRATE
     Indication: PRODUCT USED FOR UNKNOWN INDICATION
     Dosage: UNK
     Route: 065
  3. ALBUTEROL. [Suspect]
     Active Substance: ALBUTEROL
     Indication: ASTHMA
     Dosage: UNK
     Route: 065

REACTIONS (9)
  - Arthroscopy [Unknown]
  - Tooth extraction [Unknown]
  - Dyspnoea [Unknown]
  - Wheezing [Unknown]
  - Musculoskeletal pain [Unknown]
  - Therapeutic product effect incomplete [Unknown]
  - Immunodeficiency [Unknown]
  - Lung infection [Unknown]
  - Asthma [Unknown]
